FAERS Safety Report 6309598-X (Version None)
Quarter: 2009Q3

REPORT INFORMATION
  Report Type: 
  Country: None (occurrence: None)
  Receive Date: 20090811
  Receipt Date: 20090617
  Transmission Date: 20100115
  Serious: No
  Sender: FDA-Public Use
  Company Number: 1000006895

PATIENT
  Age: 41 Year
  Sex: Male

DRUGS (5)
  1. SAVELLA [Suspect]
     Indication: FIBROMYALGIA
     Dosage: 12.5 MG (12.5 MG, 1 IN 1 D), ORAL; 25 MG (12.5 MG, 2 IN 1 D), ORAL
     Route: 048
     Dates: start: 20090614, end: 20090614
  2. SAVELLA [Suspect]
     Indication: FIBROMYALGIA
     Dosage: 12.5 MG (12.5 MG, 1 IN 1 D), ORAL; 25 MG (12.5 MG, 2 IN 1 D), ORAL
     Route: 048
     Dates: start: 20090615, end: 20090616
  3. SAVELLA [Suspect]
     Indication: FIBROMYALGIA
  4. CELEBREX [Concomitant]
  5. AMRIX [Concomitant]

REACTIONS (3)
  - NIGHT SWEATS [None]
  - PARAESTHESIA [None]
  - SLEEP DISORDER [None]
